FAERS Safety Report 13676179 (Version 7)
Quarter: 2018Q2

REPORT INFORMATION
  Report Type: Report from Study
  Country: None (occurrence: US)
  Receive Date: 20170622
  Receipt Date: 20180430
  Transmission Date: 20180711
  Serious: Yes (Hospitalization, Other)
  Sender: FDA-Public Use
  Company Number: US-ABBVIE-17K-163-2013009-00

PATIENT
  Age: 55 Year
  Sex: Female
  Weight: 100.33 kg

DRUGS (12)
  1. EUROGESIC [Concomitant]
     Indication: PAIN
  2. VITAMIN D [Concomitant]
     Active Substance: CHOLECALCIFEROL
     Indication: VITAMIN D DEFICIENCY
  3. HUMIRA [Suspect]
     Active Substance: ADALIMUMAB
     Indication: RHEUMATOID ARTHRITIS
     Route: 058
     Dates: start: 201604, end: 201704
  4. DIAZEPAM. [Concomitant]
     Active Substance: DIAZEPAM
     Indication: MUSCLE SPASMS
  5. LEVOTHYROXINE. [Concomitant]
     Active Substance: LEVOTHYROXINE
     Indication: HYPOTHYROIDISM
  6. FORTEO [Concomitant]
     Active Substance: TERIPARATIDE
     Indication: OSTEOPOROSIS
  7. METHOTREXATE. [Suspect]
     Active Substance: METHOTREXATE
     Indication: RHEUMATOID ARTHRITIS
     Route: 065
  8. HYDROMORPHONE [Concomitant]
     Active Substance: HYDROMORPHONE
     Indication: PAIN
  9. PANTOPRAZOLE [Concomitant]
     Active Substance: PANTOPRAZOLE
     Indication: GASTROOESOPHAGEAL REFLUX DISEASE
  10. LYRICA [Concomitant]
     Active Substance: PREGABALIN
     Indication: MYALGIA
  11. CORTEF [Concomitant]
     Active Substance: HYDROCORTISONE
     Indication: ADDISON^S DISEASE
  12. HUMIRA [Suspect]
     Active Substance: ADALIMUMAB
     Indication: ANKYLOSING SPONDYLITIS
     Route: 058
     Dates: start: 201704

REACTIONS (21)
  - Dyspnoea [Not Recovered/Not Resolved]
  - Vitamin B12 deficiency [Not Recovered/Not Resolved]
  - Fluid intake reduced [Unknown]
  - Blood iron decreased [Unknown]
  - Chronic kidney disease [Unknown]
  - Blindness [Unknown]
  - Dehydration [Unknown]
  - Hypophagia [Unknown]
  - Hip arthroplasty [Recovered/Resolved]
  - Cataract [Unknown]
  - Intra-abdominal fluid collection [Unknown]
  - Bone marrow failure [Not Recovered/Not Resolved]
  - Haemoglobin decreased [Recovered/Resolved]
  - Rheumatoid arthritis [Unknown]
  - Contusion [Unknown]
  - Insomnia [Unknown]
  - Syncope [Recovered/Resolved]
  - Myalgia [Recovered/Resolved]
  - Tooth infection [Recovered/Resolved]
  - Injection site pain [Unknown]
  - Mobility decreased [Unknown]

NARRATIVE: CASE EVENT DATE: 2017
